FAERS Safety Report 9234919 (Version 1)
Quarter: 2013Q2

REPORT INFORMATION
  Report Type: Spontaneous
  Country: US (occurrence: US)
  Receive Date: 20130416
  Receipt Date: 20130416
  Transmission Date: 20140414
  Serious: No
  Sender: FDA-Public Use
  Company Number: US-BANPHARM-20120263

PATIENT
  Age: 86 Year
  Sex: Female
  Weight: 65.32 kg

DRUGS (7)
  1. ALEVE LIQUID GELS 220 MG [Suspect]
     Dosage: 2 DF, BID,
     Route: 048
     Dates: start: 201208
  2. CANCER PILL [Concomitant]
  3. HIGH BLOOD PRESSURE PILL [Concomitant]
  4. LOW DOSE ASPIRIN REGIMEN BAYER?- UNKNOWN [Concomitant]
     Indication: ISCHAEMIC HEART DISEASE PROPHYLAXIS
     Route: 048
  5. STOOL SOFTENER [Concomitant]
  6. CALCIUM [Concomitant]
  7. CHOLESTEROL MEDICATION [Concomitant]

REACTIONS (3)
  - Drug effect incomplete [Unknown]
  - Incorrect dose administered [Unknown]
  - Incorrect drug administration duration [Unknown]
